FAERS Safety Report 11324872 (Version 4)
Quarter: 2015Q4

REPORT INFORMATION
  Report Type: Report from Study
  Country: JP (occurrence: JP)
  Receive Date: 20150730
  Receipt Date: 20151207
  Transmission Date: 20160304
  Serious: Yes (Other)
  Sender: FDA-Public Use
  Company Number: JP-JNJFOC-20150718351

PATIENT
  Age: 58 Year
  Sex: Male
  Weight: 66 kg

DRUGS (16)
  1. PEGASYS [Suspect]
     Active Substance: PEGINTERFERON ALFA-2A
     Indication: CHRONIC HEPATITIS C
     Route: 058
     Dates: start: 20150109
  2. LULICON [Concomitant]
     Indication: PROPHYLAXIS
     Dosage: DOSAGE FORM REPORTED AS LOTION
     Route: 061
     Dates: start: 20141218, end: 20141225
  3. PEGASYS [Suspect]
     Active Substance: PEGINTERFERON ALFA-2A
     Indication: CHRONIC HEPATITIS C
     Route: 058
     Dates: start: 20141226, end: 20141226
  4. PEGASYS [Suspect]
     Active Substance: PEGINTERFERON ALFA-2A
     Indication: CHRONIC HEPATITIS C
     Route: 058
     Dates: start: 20141121, end: 20141121
  5. PEGASYS [Suspect]
     Active Substance: PEGINTERFERON ALFA-2A
     Indication: CHRONIC HEPATITIS C
     Route: 058
     Dates: start: 20150102, end: 20150102
  6. DELSPART [Concomitant]
     Route: 065
     Dates: start: 20141226
  7. CALONAL [Concomitant]
     Active Substance: ACETAMINOPHEN
     Indication: DERMAL CYST
     Route: 048
     Dates: start: 20141211, end: 20141218
  8. REBAMIPIDE [Concomitant]
     Active Substance: REBAMIPIDE
     Route: 048
     Dates: start: 20141211, end: 20141218
  9. LULICON [Concomitant]
     Indication: PROPHYLAXIS
     Dosage: DOSAGE FORM REPORTED AS OINTMENT
     Route: 061
     Dates: start: 20141218, end: 20141225
  10. LULICON [Concomitant]
     Indication: ONYCHOMYCOSIS
     Dosage: DOSAGE FORM REPORTED AS OINTMENT
     Route: 061
     Dates: start: 20141218, end: 20141225
  11. LULICON [Concomitant]
     Indication: ONYCHOMYCOSIS
     Dosage: DOSAGE FORM REPORTED AS LOTION
     Route: 061
     Dates: start: 20141218, end: 20141225
  12. RIBAVIRIN. [Concomitant]
     Active Substance: RIBAVIRIN
     Indication: CHRONIC HEPATITIS C
     Route: 048
     Dates: start: 20141121
  13. SOVRIAD [Suspect]
     Active Substance: SIMEPREVIR
     Indication: CHRONIC HEPATITIS C
     Route: 048
     Dates: start: 20141121, end: 20150212
  14. PETROLATUM SALICYLATE [Concomitant]
     Indication: DERMAL CYST
     Route: 065
     Dates: start: 20141211, end: 20141218
  15. PEGASYS [Suspect]
     Active Substance: PEGINTERFERON ALFA-2A
     Indication: CHRONIC HEPATITIS C
     Route: 058
     Dates: start: 20141128, end: 20141219
  16. FLOMOX [Concomitant]
     Active Substance: CEFCAPENE PIVOXIL HYDROCHLORIDE HYDRATE
     Indication: DERMAL CYST
     Route: 048
     Dates: start: 20141211, end: 20141218

REACTIONS (4)
  - Platelet count decreased [Recovered/Resolved]
  - Insomnia [Not Recovered/Not Resolved]
  - Neutrophil count decreased [Recovered/Resolved]
  - Pyrexia [Recovered/Resolved]

NARRATIVE: CASE EVENT DATE: 20141121
